FAERS Safety Report 7910091-9 (Version None)
Quarter: 2011Q4

REPORT INFORMATION
  Report Type: 
  Country: None (occurrence: None)
  Receive Date: 20111111
  Receipt Date: 20111103
  Transmission Date: 20120403
  Serious: Yes (Death, Hospitalization, Other)
  Sender: FDA-Public Use
  Company Number: FR-BRISTOL-MYERS SQUIBB COMPANY-15396070

PATIENT
  Age: 42 Year
  Sex: Male
  Weight: 68 kg

DRUGS (8)
  1. LYRICA [Concomitant]
     Indication: PAIN
     Route: 048
     Dates: start: 20100915
  2. IPILIMUMAB [Suspect]
     Indication: MALIGNANT MELANOMA
     Dosage: NUMBER OF INJECTION: 4
     Route: 042
     Dates: start: 20100915, end: 20101022
  3. OXYCODONE HCL [Concomitant]
     Dosage: 1 DF: 3 TABS.20MG
  4. IMOVANE [Concomitant]
  5. MORPHINE [Concomitant]
     Indication: PAIN
     Route: 048
     Dates: start: 20100915
  6. OXYCONTIN [Concomitant]
     Dosage: 3-0-3 80MG
  7. PREDNISONE [Concomitant]
     Indication: PAIN
     Route: 048
     Dates: start: 20100915
  8. ACETAMINOPHEN [Concomitant]

REACTIONS (3)
  - NEOPLASM MALIGNANT [None]
  - ACQUIRED HAEMOPHILIA [None]
  - HAEMATURIA [None]
